FAERS Safety Report 4695779-8 (Version None)
Quarter: 2005Q2

REPORT INFORMATION
  Report Type: 
  Country: None (occurrence: None)
  Receive Date: 20050620
  Receipt Date: 20050620
  Transmission Date: 20051028
  Serious: Yes (Hospitalization)
  Sender: FDA-Public Use
  Company Number: None

PATIENT
  Age: 81 Year
  Sex: Female

DRUGS (1)
  1. ANGIOFLUR 10% (FLUORESCEIN INJECTION 10%) [Suspect]
     Indication: MACULAR DEGENERATION
     Dosage: 5 CC  IV, LEFT WRIST
     Route: 042
     Dates: start: 20030108

REACTIONS (2)
  - ANAPHYLACTIC REACTION [None]
  - CARDIO-RESPIRATORY ARREST [None]
